FAERS Safety Report 4421400-X (Version None)
Quarter: 2004Q3

REPORT INFORMATION
  Report Type: 
  Country: None (occurrence: None)
  Receive Date: 20040719
  Receipt Date: 20040203
  Transmission Date: 20050211
  Serious: No
  Sender: FDA-Public Use
  Company Number: A03200400378

PATIENT
  Age: 72 Year
  Sex: Male

DRUGS (6)
  1. UROXATRAL [Suspect]
     Indication: DYSURIA
     Dosage: ORAL
     Route: 048
     Dates: start: 20031118
  2. UROXATRAL [Suspect]
     Indication: POLLAKIURIA
     Dosage: ORAL
     Route: 048
     Dates: start: 20031118
  3. OLMESARTAN [Concomitant]
  4. HYOSCYAMINE/ PHENAZOPYRIDINE [Concomitant]
  5. SIMVASTATIN [Concomitant]
  6. CARVEDILOL [Concomitant]

REACTIONS (2)
  - DIZZINESS [None]
  - DRUG INEFFECTIVE [None]
